FAERS Safety Report 7170864-X (Version None)
Quarter: 2010Q4

REPORT INFORMATION
  Report Type: 
  Country: None (occurrence: None)
  Receive Date: 20101206
  Receipt Date: 20101129
  Transmission Date: 20110411
  Serious: Yes (Other)
  Sender: FDA-Public Use
  Company Number: 20109363

PATIENT
  Age: 14 Year
  Sex: Male

DRUGS (4)
  1. BACLOFEN [Suspect]
     Indication: MUSCLE SPASTICITY
     Dosage: DAILY, INTRATHECAL
     Route: 037
  2. PHENOBAL [Concomitant]
  3. ALFAROL [Concomitant]
  4. MAGNESIUM OXIDE [Concomitant]

REACTIONS (3)
  - DEVICE LEAKAGE [None]
  - IMPLANT SITE EFFUSION [None]
  - IMPLANT SITE SWELLING [None]
